FAERS Safety Report 13121282 (Version 1)
Quarter: 2017Q1

REPORT INFORMATION
  Report Type: Spontaneous
  Country: US (occurrence: US)
  Receive Date: 20170117
  Receipt Date: 20170117
  Transmission Date: 20170428
  Serious: Yes (Other)
  Sender: FDA-Public Use
  Company Number: US-TEVA-729774USA

PATIENT
  Age: 24 Year
  Sex: Male

DRUGS (2)
  1. METHYLENEDIOXYMETAMFETAMINE [Suspect]
     Active Substance: METHYLENEDIOXYMETHAMPHETAMINE
     Route: 065
  2. DESMOPRESSIN [Suspect]
     Active Substance: DESMOPRESSIN
     Indication: DIABETES INSIPIDUS
     Route: 065

REACTIONS (2)
  - Drug abuse [Unknown]
  - Inappropriate antidiuretic hormone secretion [Recovered/Resolved]
